FAERS Safety Report 20079594 (Version 1)
Quarter: 2021Q4

REPORT INFORMATION
  Report Type: Report from Study
  Country: CA (occurrence: CA)
  Receive Date: 20211117
  Receipt Date: 20211117
  Transmission Date: 20220303
  Serious: Yes (Hospitalization)
  Sender: FDA-Public Use
  Company Number: CA-GLAXOSMITHKLINE-CA2021235188

PATIENT
  Age: 63 Year
  Sex: Female

DRUGS (1)
  1. MEPOLIZUMAB [Suspect]
     Active Substance: MEPOLIZUMAB
     Indication: Asthma
     Dosage: 100 MG, Z (EVERY 4 WEEKS)
     Route: 058
     Dates: start: 20181102

REACTIONS (3)
  - Arthralgia [Unknown]
  - Nerve compression [Unknown]
  - Biopsy tongue [Recovered/Resolved]

NARRATIVE: CASE EVENT DATE: 20211107
